FAERS Safety Report 5108877-1 (Version None)
Quarter: 2006Q3

REPORT INFORMATION
  Report Type: 
  Country: None (occurrence: None)
  Receive Date: 20060915
  Receipt Date: 20060915
  Transmission Date: 20061208
  Serious: Yes (Hospitalization)
  Sender: FDA-Public Use
  Company Number: None

PATIENT
  Age: 52 Year
  Sex: Female
  Weight: 61.2356 kg

DRUGS (4)
  1. LAMISIL [Suspect]
     Indication: ONYCHOMYCOSIS
     Dates: start: 20060901, end: 20060907
  2. LEXAPRO [Concomitant]
  3. CRESTOR [Concomitant]
  4. ACTONEL [Concomitant]

REACTIONS (3)
  - RASH ERYTHEMATOUS [None]
  - RASH GENERALISED [None]
  - SKIN EXFOLIATION [None]
